FAERS Safety Report 24711860 (Version 1)
Quarter: 2024Q4

REPORT INFORMATION
  Report Type: Spontaneous
  Country: US (occurrence: None)
  Receive Date: 20241209
  Receipt Date: 20241209
  Transmission Date: 20250115
  Serious: No
  Sender: Public
  Company Number: None

PATIENT
  Age: 52 Year
  Sex: Female

DRUGS (2)
  1. EMGALITY [Suspect]
     Active Substance: GALCANEZUMAB-GNLM
     Indication: Migraine
     Route: 058
  2. EMGALITY [Suspect]
     Active Substance: GALCANEZUMAB-GNLM
     Dosage: FREQUENCY : MONTHLY;?
     Dates: start: 202412

REACTIONS (3)
  - Incorrect dose administered by device [None]
  - Device leakage [None]
  - Drug delivery system malfunction [None]

NARRATIVE: CASE EVENT DATE: 20241206
